FAERS Safety Report 12632042 (Version 3)
Quarter: 2016Q3

REPORT INFORMATION
  Report Type: Spontaneous
  Country: US (occurrence: US)
  Receive Date: 20160808
  Receipt Date: 20160823
  Transmission Date: 20161109
  Serious: No
  Sender: FDA-Public Use
  Company Number: US-BEH-2016061754

PATIENT
  Age: 67 Year
  Sex: Female
  Weight: 57.61 kg

DRUGS (27)
  1. ESTRACE [Concomitant]
     Active Substance: ESTRADIOL
  2. LIDOCAINE/PRILOCAINE [Concomitant]
     Active Substance: LIDOCAINE\PRILOCAINE
  3. BIOTIN [Concomitant]
     Active Substance: BIOTIN
  4. TEMAZEPAM. [Concomitant]
     Active Substance: TEMAZEPAM
  5. ASTEPRO [Concomitant]
     Active Substance: AZELASTINE HYDROCHLORIDE
  6. CALCIUM +D [Concomitant]
     Active Substance: CALCIUM\VITAMIN D
  7. HCTZ [Concomitant]
     Active Substance: HYDROCHLOROTHIAZIDE
  8. L-M-X [Concomitant]
  9. FLUTICASONE [Concomitant]
     Active Substance: FLUTICASONE\FLUTICASONE PROPIONATE
  10. LOSARTAN. [Concomitant]
     Active Substance: LOSARTAN
  11. CLOTRIMAZOLE. [Concomitant]
     Active Substance: CLOTRIMAZOLE
  12. HYDROCODONE-ACETAMINOPHEN [Concomitant]
     Active Substance: ACETAMINOPHEN\HYDROCODONE
  13. VERAPAMIL [Concomitant]
     Active Substance: VERAPAMIL HYDROCHLORIDE
  14. DOXYLAMINE [Concomitant]
     Active Substance: DOXYLAMINE
  15. ASTRAGALUS [Concomitant]
  16. DIPHENHYDRAMINE. [Concomitant]
     Active Substance: DIPHENHYDRAMINE
  17. EPIPEN [Concomitant]
     Active Substance: EPINEPHRINE
  18. HIZENTRA [Suspect]
     Active Substance: HUMAN IMMUNOGLOBULIN G
     Indication: IMMUNODEFICIENCY COMMON VARIABLE
     Dosage: 16 G, QOW
     Route: 058
     Dates: start: 201305
  19. NITROSTAT [Concomitant]
     Active Substance: NITROGLYCERIN
  20. IPRATROPIUM [Concomitant]
     Active Substance: IPRATROPIUM
  21. ASPIRIN. [Concomitant]
     Active Substance: ASPIRIN
  22. ACETAMINOPHEN. [Concomitant]
     Active Substance: ACETAMINOPHEN
  23. TESSALON [Concomitant]
     Active Substance: BENZONATATE
  24. SYMBICORT [Concomitant]
     Active Substance: BUDESONIDE\FORMOTEROL FUMARATE DIHYDRATE
  25. IMITREX [Concomitant]
     Active Substance: SUMATRIPTAN SUCCINATE
  26. TRIAMTERENE-HCTZ [Concomitant]
     Active Substance: HYDROCHLOROTHIAZIDE\TRIAMTERENE
  27. HORSE CHESTNUT [Concomitant]
     Active Substance: HORSE CHESTNUT

REACTIONS (1)
  - Infusion site pain [Recovered/Resolved]

NARRATIVE: CASE EVENT DATE: 201604
